FAERS Safety Report 6638776-5 (Version None)
Quarter: 2010Q1

REPORT INFORMATION
  Report Type: 
  Country: None (occurrence: None)
  Receive Date: 20100317
  Receipt Date: 20100309
  Transmission Date: 20100710
  Serious: Yes (Other)
  Sender: FDA-Public Use
  Company Number: JP-SANOFI-AVENTIS-2010SA013576

PATIENT
  Age: 51 Year
  Sex: Male

DRUGS (11)
  1. ELPLAT [Suspect]
     Indication: RECTAL CANCER RECURRENT
     Route: 041
     Dates: start: 20091027, end: 20091027
  2. ELPLAT [Suspect]
     Route: 041
     Dates: start: 20091110, end: 20091110
  3. AVASTIN [Suspect]
     Indication: RECTAL CANCER RECURRENT
     Route: 041
     Dates: start: 20091027, end: 20091027
  4. AVASTIN [Suspect]
     Route: 041
     Dates: start: 20091110, end: 20091110
  5. FLUOROURACIL [Suspect]
     Indication: RECTAL CANCER RECURRENT
     Route: 041
     Dates: start: 20091027
  6. FLUOROURACIL [Suspect]
     Route: 041
     Dates: start: 20091110, end: 20091112
  7. CALCIUM LEVOFOLINATE [Suspect]
     Indication: RECTAL CANCER RECURRENT
     Route: 041
     Dates: start: 20091027, end: 20091027
  8. CALCIUM LEVOFOLINATE [Suspect]
     Route: 041
     Dates: start: 20091110, end: 20091110
  9. KYTRIL [Concomitant]
     Dates: start: 20091027, end: 20091110
  10. DEXAMETHASONE SODIUM PHOSPHATE [Concomitant]
     Dates: start: 20091027, end: 20091110
  11. LOPEMIN [Concomitant]
     Dates: start: 20091110

REACTIONS (8)
  - ABDOMINAL PAIN [None]
  - ANAL FISTULA [None]
  - C-REACTIVE PROTEIN INCREASED [None]
  - DIARRHOEA [None]
  - MUSCULOSKELETAL PAIN [None]
  - NAUSEA [None]
  - RASH [None]
  - VOMITING [None]
